FAERS Safety Report 20051186 (Version 1)
Quarter: 2021Q4

REPORT INFORMATION
  Report Type: Spontaneous
  Country: US (occurrence: None)
  Receive Date: 20211110
  Receipt Date: 20211110
  Transmission Date: 20220303
  Serious: Yes (Hospitalization, Other)
  Sender: FDA-Public Use
  Company Number: US-Hikma Pharmaceuticals USA Inc.-US-H14001-21-04719

PATIENT
  Age: 66 Year
  Sex: Female

DRUGS (6)
  1. RITONAVIR [Suspect]
     Active Substance: RITONAVIR
     Indication: Antiretroviral therapy
     Dosage: UNKNOWN
     Route: 065
  2. EMTRICITABINE [Suspect]
     Active Substance: EMTRICITABINE
     Indication: Antiretroviral therapy
     Dosage: UNKNOWN
     Route: 065
  3. TENOFOVIR [Suspect]
     Active Substance: TENOFOVIR
     Indication: Antiretroviral therapy
     Dosage: UNKNOWN
     Route: 065
  4. ATAZANAVIR [Suspect]
     Active Substance: ATAZANAVIR
     Indication: Antiretroviral therapy
     Dosage: UNKNOWN
     Route: 065
  5. REMDESIVIR [Concomitant]
     Active Substance: REMDESIVIR
     Indication: Antiretroviral therapy
     Dosage: 5 DOSES
     Route: 065
  6. DEXAMETHASONE [Concomitant]
     Active Substance: DEXAMETHASONE
     Indication: Antiretroviral therapy
     Route: 065

REACTIONS (2)
  - Oxygen therapy [Unknown]
  - Immune reconstitution inflammatory syndrome [Unknown]
